FAERS Safety Report 5410711-7 (Version None)
Quarter: 2007Q3

REPORT INFORMATION
  Report Type: 
  Country: None (occurrence: None)
  Receive Date: 20070810
  Receipt Date: 20070108
  Transmission Date: 20080115
  Serious: No
  Sender: FDA-Public Use
  Company Number: A0633771A

PATIENT
  Age: 33 Year
  Sex: Female

DRUGS (2)
  1. PAXIL CR [Suspect]
     Indication: DRUG USE FOR UNKNOWN INDICATION
     Dosage: 12.5MG PER DAY
     Route: 048
     Dates: start: 20061201
  2. LOVASTATIN [Concomitant]

REACTIONS (3)
  - DIARRHOEA [None]
  - MALAISE [None]
  - RETCHING [None]
